FAERS Safety Report 9752960 (Version 4)
Quarter: 2015Q2

REPORT INFORMATION
  Report Type: Spontaneous
  Country: US (occurrence: US)
  Receive Date: 20131213
  Receipt Date: 20150525
  Transmission Date: 20150821
  Serious: Yes (Life-Threatening, Other)
  Sender: FDA-Public Use
  Company Number: US-JNJFOC-20131104496

PATIENT
  Age: 64 Year
  Sex: Female
  Weight: 103.87 kg

DRUGS (148)
  1. SIMPONI ARIA [Suspect]
     Active Substance: GOLIMUMAB
     Indication: RHEUMATOID ARTHRITIS
     Route: 042
     Dates: start: 20131008
  2. FOLIC ACID. [Concomitant]
     Active Substance: FOLIC ACID
     Route: 065
     Dates: start: 20131106
  3. ATELVIA [Concomitant]
     Active Substance: RISEDRONATE SODIUM
     Route: 065
     Dates: start: 20130430
  4. AMBIEN [Concomitant]
     Active Substance: ZOLPIDEM TARTRATE
     Route: 065
     Dates: start: 20131106
  5. LORCET [Concomitant]
     Active Substance: ACETAMINOPHEN\HYDROCODONE BITARTRATE
     Dosage: PM
     Route: 065
     Dates: start: 20130430
  6. NEURONTIN [Concomitant]
     Active Substance: GABAPENTIN
     Route: 065
     Dates: start: 20130702
  7. SOMA [Concomitant]
     Active Substance: CARISOPRODOL
     Route: 065
     Dates: start: 20130430
  8. PRISTIQ EXTENDED RELEASE [Concomitant]
     Active Substance: DESVENLAFAXINE SUCCINATE
     Route: 065
     Dates: start: 20130730
  9. PRISTIQ EXTENDED RELEASE [Concomitant]
     Active Substance: DESVENLAFAXINE SUCCINATE
     Route: 065
     Dates: start: 20130604
  10. FLECAINIDE ACETATE. [Concomitant]
     Active Substance: FLECAINIDE ACETATE
     Route: 065
     Dates: start: 20131125
  11. FLECAINIDE ACETATE. [Concomitant]
     Active Substance: FLECAINIDE ACETATE
     Route: 065
     Dates: start: 20131008
  12. MTV [Concomitant]
     Route: 065
     Dates: start: 20130430
  13. MTV [Concomitant]
     Route: 065
     Dates: start: 20130702
  14. IRON SUPPLEMENT [Concomitant]
     Active Substance: IRON
     Route: 065
     Dates: start: 20131008
  15. EVOXAC [Concomitant]
     Active Substance: CEVIMELINE HYDROCHLORIDE
     Route: 065
     Dates: start: 20130404
  16. EVOXAC [Concomitant]
     Active Substance: CEVIMELINE HYDROCHLORIDE
     Route: 065
     Dates: start: 20131125
  17. SYNTHROID [Concomitant]
     Active Substance: LEVOTHYROXINE SODIUM
     Route: 065
     Dates: start: 20130827
  18. SYNTHROID [Concomitant]
     Active Substance: LEVOTHYROXINE SODIUM
     Route: 065
     Dates: start: 20131125
  19. LASIX [Concomitant]
     Active Substance: FUROSEMIDE
     Route: 065
     Dates: start: 20131008
  20. TYLENOL [Concomitant]
     Active Substance: ACETAMINOPHEN
     Dosage: PM
     Route: 065
     Dates: start: 20131106
  21. TYLENOL [Concomitant]
     Active Substance: ACETAMINOPHEN
     Dosage: PM
     Route: 065
     Dates: start: 20130702
  22. TYLENOL [Concomitant]
     Active Substance: ACETAMINOPHEN
     Dosage: PM
     Route: 065
     Dates: start: 20130604
  23. VITAMIN D [Concomitant]
     Active Substance: CHOLECALCIFEROL
     Route: 065
     Dates: start: 20130730
  24. VITAMIN D [Concomitant]
     Active Substance: CHOLECALCIFEROL
     Route: 065
     Dates: start: 20131106
  25. VITAMIN D [Concomitant]
     Active Substance: CHOLECALCIFEROL
     Route: 065
     Dates: start: 20130430
  26. VITAMIN D [Concomitant]
     Active Substance: CHOLECALCIFEROL
     Route: 065
     Dates: start: 20130404
  27. ZYRTEC [Concomitant]
     Active Substance: CETIRIZINE HYDROCHLORIDE
     Route: 065
     Dates: start: 20131106
  28. ZYRTEC [Concomitant]
     Active Substance: CETIRIZINE HYDROCHLORIDE
     Route: 065
     Dates: start: 20130702
  29. ZYRTEC [Concomitant]
     Active Substance: CETIRIZINE HYDROCHLORIDE
     Route: 065
     Dates: start: 20130604
  30. ZYRTEC [Concomitant]
     Active Substance: CETIRIZINE HYDROCHLORIDE
     Route: 065
     Dates: start: 20130404
  31. METHOTREXATE [Concomitant]
     Active Substance: METHOTREXATE
     Indication: RHEUMATOID ARTHRITIS
     Dosage: 0.3 CC
     Route: 065
     Dates: start: 20131008
  32. ATELVIA [Concomitant]
     Active Substance: RISEDRONATE SODIUM
     Route: 065
     Dates: start: 20130404
  33. AMBIEN [Concomitant]
     Active Substance: ZOLPIDEM TARTRATE
     Route: 065
     Dates: start: 20131008
  34. AMBIEN [Concomitant]
     Active Substance: ZOLPIDEM TARTRATE
     Route: 065
     Dates: start: 20130827
  35. AMBIEN [Concomitant]
     Active Substance: ZOLPIDEM TARTRATE
     Route: 065
     Dates: start: 20130404
  36. LORCET [Concomitant]
     Active Substance: ACETAMINOPHEN\HYDROCODONE BITARTRATE
     Dosage: PM
     Route: 065
     Dates: start: 20130730
  37. SOMA [Concomitant]
     Active Substance: CARISOPRODOL
     Route: 065
     Dates: start: 20130702
  38. SOMA [Concomitant]
     Active Substance: CARISOPRODOL
     Route: 065
     Dates: start: 20130404
  39. CITRACAL [Concomitant]
     Active Substance: CALCIUM CITRATE
     Route: 065
     Dates: start: 20130702
  40. CITRACAL [Concomitant]
     Active Substance: CALCIUM CITRATE
     Route: 065
     Dates: start: 20130604
  41. FLECAINIDE ACETATE. [Concomitant]
     Active Substance: FLECAINIDE ACETATE
     Route: 065
     Dates: start: 20130827
  42. IRON SUPPLEMENT [Concomitant]
     Active Substance: IRON
     Route: 065
     Dates: start: 20130604
  43. EVOXAC [Concomitant]
     Active Substance: CEVIMELINE HYDROCHLORIDE
     Route: 065
     Dates: start: 20130430
  44. EVOXAC [Concomitant]
     Active Substance: CEVIMELINE HYDROCHLORIDE
     Route: 065
     Dates: start: 20130702
  45. SYNTHROID [Concomitant]
     Active Substance: LEVOTHYROXINE SODIUM
     Route: 065
     Dates: start: 20130730
  46. SYNTHROID [Concomitant]
     Active Substance: LEVOTHYROXINE SODIUM
     Route: 065
     Dates: start: 20131008
  47. LASIX [Concomitant]
     Active Substance: FUROSEMIDE
     Route: 065
     Dates: start: 20130730
  48. LASIX [Concomitant]
     Active Substance: FUROSEMIDE
     Route: 065
     Dates: start: 20130827
  49. LEVSIN [Concomitant]
     Active Substance: HYOSCYAMINE SULFATE
     Indication: LARYNGOSPASM
     Route: 065
  50. VITAMIN D [Concomitant]
     Active Substance: CHOLECALCIFEROL
     Route: 065
     Dates: start: 20130702
  51. METHOTREXATE [Concomitant]
     Active Substance: METHOTREXATE
     Indication: RHEUMATOID ARTHRITIS
     Dosage: 0.3 CC
     Route: 065
     Dates: start: 20131106
  52. ATELVIA [Concomitant]
     Active Substance: RISEDRONATE SODIUM
     Route: 065
     Dates: start: 20130702
  53. ATELVIA [Concomitant]
     Active Substance: RISEDRONATE SODIUM
     Route: 065
     Dates: start: 20130604
  54. LORCET [Concomitant]
     Active Substance: ACETAMINOPHEN\HYDROCODONE BITARTRATE
     Dosage: PM
     Route: 065
     Dates: start: 20130404
  55. CITRACAL [Concomitant]
     Active Substance: CALCIUM CITRATE
     Route: 065
     Dates: start: 20130404
  56. PRISTIQ EXTENDED RELEASE [Concomitant]
     Active Substance: DESVENLAFAXINE SUCCINATE
     Route: 065
     Dates: start: 20131008
  57. FLECAINIDE ACETATE. [Concomitant]
     Active Substance: FLECAINIDE ACETATE
     Route: 065
     Dates: start: 20130430
  58. MTV [Concomitant]
     Route: 065
     Dates: start: 20130827
  59. IRON SUPPLEMENT [Concomitant]
     Active Substance: IRON
     Route: 065
     Dates: start: 20130404
  60. EVOXAC [Concomitant]
     Active Substance: CEVIMELINE HYDROCHLORIDE
     Route: 065
     Dates: start: 20131106
  61. SYNTHROID [Concomitant]
     Active Substance: LEVOTHYROXINE SODIUM
     Route: 065
     Dates: start: 20130604
  62. VITAMIN D [Concomitant]
     Active Substance: CHOLECALCIFEROL
     Route: 065
     Dates: start: 20131008
  63. VITAMIN D [Concomitant]
     Active Substance: CHOLECALCIFEROL
     Route: 065
     Dates: start: 20130604
  64. FOLIC ACID. [Concomitant]
     Active Substance: FOLIC ACID
     Route: 065
     Dates: start: 20131125
  65. FOLIC ACID. [Concomitant]
     Active Substance: FOLIC ACID
     Route: 065
     Dates: start: 20131008
  66. ATELVIA [Concomitant]
     Active Substance: RISEDRONATE SODIUM
     Route: 065
     Dates: start: 20131106
  67. ATELVIA [Concomitant]
     Active Substance: RISEDRONATE SODIUM
     Route: 065
     Dates: start: 20131008
  68. AMBIEN [Concomitant]
     Active Substance: ZOLPIDEM TARTRATE
     Route: 065
     Dates: start: 20130730
  69. LORCET [Concomitant]
     Active Substance: ACETAMINOPHEN\HYDROCODONE BITARTRATE
     Dosage: PM
     Route: 065
     Dates: start: 20130604
  70. NEURONTIN [Concomitant]
     Active Substance: GABAPENTIN
     Route: 065
     Dates: start: 20131106
  71. NEURONTIN [Concomitant]
     Active Substance: GABAPENTIN
     Route: 065
     Dates: start: 20131008
  72. NEURONTIN [Concomitant]
     Active Substance: GABAPENTIN
     Route: 065
     Dates: start: 20131125
  73. SOMA [Concomitant]
     Active Substance: CARISOPRODOL
     Route: 065
     Dates: start: 20131106
  74. SOMA [Concomitant]
     Active Substance: CARISOPRODOL
     Route: 065
     Dates: start: 20130604
  75. CITRACAL [Concomitant]
     Active Substance: CALCIUM CITRATE
     Route: 065
     Dates: start: 20130430
  76. PRISTIQ EXTENDED RELEASE [Concomitant]
     Active Substance: DESVENLAFAXINE SUCCINATE
     Route: 065
     Dates: start: 20131125
  77. PRISTIQ EXTENDED RELEASE [Concomitant]
     Active Substance: DESVENLAFAXINE SUCCINATE
     Route: 065
     Dates: start: 20131106
  78. FLECAINIDE ACETATE. [Concomitant]
     Active Substance: FLECAINIDE ACETATE
     Route: 065
     Dates: start: 20130702
  79. IRON SUPPLEMENT [Concomitant]
     Active Substance: IRON
     Route: 065
     Dates: start: 20130702
  80. IRON SUPPLEMENT [Concomitant]
     Active Substance: IRON
     Route: 065
     Dates: start: 20131125
  81. EVOXAC [Concomitant]
     Active Substance: CEVIMELINE HYDROCHLORIDE
     Route: 065
     Dates: start: 20130604
  82. EVOXAC [Concomitant]
     Active Substance: CEVIMELINE HYDROCHLORIDE
     Route: 065
     Dates: start: 20130730
  83. TYLENOL [Concomitant]
     Active Substance: ACETAMINOPHEN
     Dosage: PM
     Route: 065
     Dates: start: 20130730
  84. TYLENOL [Concomitant]
     Active Substance: ACETAMINOPHEN
     Dosage: PM
     Route: 065
     Dates: start: 20130827
  85. VITAMIN D [Concomitant]
     Active Substance: CHOLECALCIFEROL
     Route: 065
     Dates: start: 20131125
  86. ATELVIA [Concomitant]
     Active Substance: RISEDRONATE SODIUM
     Route: 065
     Dates: start: 20130730
  87. ATELVIA [Concomitant]
     Active Substance: RISEDRONATE SODIUM
     Route: 065
     Dates: start: 20131125
  88. NEURONTIN [Concomitant]
     Active Substance: GABAPENTIN
     Route: 065
     Dates: start: 20130730
  89. NEURONTIN [Concomitant]
     Active Substance: GABAPENTIN
     Route: 065
     Dates: start: 20130430
  90. SOMA [Concomitant]
     Active Substance: CARISOPRODOL
     Route: 065
     Dates: start: 20131008
  91. CITRACAL [Concomitant]
     Active Substance: CALCIUM CITRATE
     Route: 065
     Dates: start: 20131125
  92. PRISTIQ EXTENDED RELEASE [Concomitant]
     Active Substance: DESVENLAFAXINE SUCCINATE
     Route: 065
     Dates: start: 20130702
  93. FLECAINIDE ACETATE. [Concomitant]
     Active Substance: FLECAINIDE ACETATE
     Route: 065
     Dates: start: 20130604
  94. FLECAINIDE ACETATE. [Concomitant]
     Active Substance: FLECAINIDE ACETATE
     Route: 065
     Dates: start: 20130730
  95. MTV [Concomitant]
     Route: 065
     Dates: start: 20131125
  96. MTV [Concomitant]
     Route: 065
     Dates: start: 20131106
  97. IRON SUPPLEMENT [Concomitant]
     Active Substance: IRON
     Route: 065
     Dates: start: 20130730
  98. IRON SUPPLEMENT [Concomitant]
     Active Substance: IRON
     Route: 065
     Dates: start: 20130430
  99. IRON SUPPLEMENT [Concomitant]
     Active Substance: IRON
     Route: 065
     Dates: start: 20130827
  100. IRON SUPPLEMENT [Concomitant]
     Active Substance: IRON
     Route: 065
     Dates: start: 20131106
  101. LASIX [Concomitant]
     Active Substance: FUROSEMIDE
     Route: 065
     Dates: start: 20130702
  102. ATELVIA [Concomitant]
     Active Substance: RISEDRONATE SODIUM
     Route: 065
     Dates: start: 20130827
  103. LORCET [Concomitant]
     Active Substance: ACETAMINOPHEN\HYDROCODONE BITARTRATE
     Dosage: PM
     Route: 065
     Dates: start: 20130827
  104. NEURONTIN [Concomitant]
     Active Substance: GABAPENTIN
     Route: 065
     Dates: start: 20130827
  105. CITRACAL [Concomitant]
     Active Substance: CALCIUM CITRATE
     Route: 065
     Dates: start: 20130730
  106. PRISTIQ EXTENDED RELEASE [Concomitant]
     Active Substance: DESVENLAFAXINE SUCCINATE
     Route: 065
     Dates: start: 20130404
  107. SYNTHROID [Concomitant]
     Active Substance: LEVOTHYROXINE SODIUM
     Route: 065
     Dates: start: 20131106
  108. LASIX [Concomitant]
     Active Substance: FUROSEMIDE
     Route: 065
     Dates: start: 20131106
  109. SIMPONI ARIA [Suspect]
     Active Substance: GOLIMUMAB
     Indication: RHEUMATOID ARTHRITIS
     Route: 042
     Dates: start: 20131106
  110. TYLENOL [Concomitant]
     Active Substance: ACETAMINOPHEN
     Dosage: PM
     Route: 065
     Dates: start: 20130404
  111. ZYRTEC [Concomitant]
     Active Substance: CETIRIZINE HYDROCHLORIDE
     Route: 065
     Dates: start: 20130730
  112. ZYRTEC [Concomitant]
     Active Substance: CETIRIZINE HYDROCHLORIDE
     Route: 065
     Dates: start: 20131125
  113. ZYRTEC [Concomitant]
     Active Substance: CETIRIZINE HYDROCHLORIDE
     Route: 065
     Dates: start: 20130430
  114. METHOTREXATE [Concomitant]
     Active Substance: METHOTREXATE
     Indication: RHEUMATOID ARTHRITIS
     Dosage: 0.3 CC
     Route: 065
     Dates: start: 20131125
  115. AMBIEN [Concomitant]
     Active Substance: ZOLPIDEM TARTRATE
     Route: 065
     Dates: start: 20130702
  116. LORCET [Concomitant]
     Active Substance: ACETAMINOPHEN\HYDROCODONE BITARTRATE
     Dosage: PM
     Route: 065
     Dates: start: 20131125
  117. LORCET [Concomitant]
     Active Substance: ACETAMINOPHEN\HYDROCODONE BITARTRATE
     Dosage: PM
     Route: 065
     Dates: start: 20130702
  118. NEURONTIN [Concomitant]
     Active Substance: GABAPENTIN
     Route: 065
     Dates: start: 20130604
  119. NEURONTIN [Concomitant]
     Active Substance: GABAPENTIN
     Route: 065
     Dates: start: 20130404
  120. SOMA [Concomitant]
     Active Substance: CARISOPRODOL
     Route: 065
     Dates: start: 20130827
  121. CITRACAL [Concomitant]
     Active Substance: CALCIUM CITRATE
     Route: 065
     Dates: start: 20131106
  122. CITRACAL [Concomitant]
     Active Substance: CALCIUM CITRATE
     Route: 065
     Dates: start: 20131008
  123. CITRACAL [Concomitant]
     Active Substance: CALCIUM CITRATE
     Route: 065
     Dates: start: 20130827
  124. PRISTIQ EXTENDED RELEASE [Concomitant]
     Active Substance: DESVENLAFAXINE SUCCINATE
     Route: 065
     Dates: start: 20130827
  125. PRISTIQ EXTENDED RELEASE [Concomitant]
     Active Substance: DESVENLAFAXINE SUCCINATE
     Route: 065
     Dates: start: 20130430
  126. FLECAINIDE ACETATE. [Concomitant]
     Active Substance: FLECAINIDE ACETATE
     Route: 065
     Dates: start: 20131106
  127. MTV [Concomitant]
     Route: 065
     Dates: start: 20130404
  128. MTV [Concomitant]
     Route: 065
     Dates: start: 20130730
  129. EVOXAC [Concomitant]
     Active Substance: CEVIMELINE HYDROCHLORIDE
     Route: 065
     Dates: start: 20130827
  130. EVOXAC [Concomitant]
     Active Substance: CEVIMELINE HYDROCHLORIDE
     Route: 065
     Dates: start: 20131008
  131. TYLENOL [Concomitant]
     Active Substance: ACETAMINOPHEN
     Dosage: PM
     Route: 065
     Dates: start: 20131008
  132. TYLENOL [Concomitant]
     Active Substance: ACETAMINOPHEN
     Dosage: PM
     Route: 065
     Dates: start: 20131125
  133. TYLENOL [Concomitant]
     Active Substance: ACETAMINOPHEN
     Dosage: PM
     Route: 065
     Dates: start: 20130430
  134. VITAMIN D [Concomitant]
     Active Substance: CHOLECALCIFEROL
     Route: 065
     Dates: start: 20130827
  135. ZYRTEC [Concomitant]
     Active Substance: CETIRIZINE HYDROCHLORIDE
     Route: 065
     Dates: start: 20131008
  136. ZYRTEC [Concomitant]
     Active Substance: CETIRIZINE HYDROCHLORIDE
     Route: 065
     Dates: start: 20130827
  137. AMBIEN [Concomitant]
     Active Substance: ZOLPIDEM TARTRATE
     Route: 065
     Dates: start: 20131125
  138. AMBIEN [Concomitant]
     Active Substance: ZOLPIDEM TARTRATE
     Route: 065
     Dates: start: 20130604
  139. AMBIEN [Concomitant]
     Active Substance: ZOLPIDEM TARTRATE
     Route: 065
     Dates: start: 20130430
  140. LORCET [Concomitant]
     Active Substance: ACETAMINOPHEN\HYDROCODONE BITARTRATE
     Dosage: PM
     Route: 065
     Dates: start: 20131106
  141. LORCET [Concomitant]
     Active Substance: ACETAMINOPHEN\HYDROCODONE BITARTRATE
     Dosage: PM
     Route: 065
     Dates: start: 20131008
  142. SOMA [Concomitant]
     Active Substance: CARISOPRODOL
     Route: 065
     Dates: start: 20130730
  143. SOMA [Concomitant]
     Active Substance: CARISOPRODOL
     Route: 065
     Dates: start: 20131125
  144. FLECAINIDE ACETATE. [Concomitant]
     Active Substance: FLECAINIDE ACETATE
     Route: 065
     Dates: start: 20130404
  145. MTV [Concomitant]
     Route: 065
     Dates: start: 20130604
  146. MTV [Concomitant]
     Route: 065
     Dates: start: 20131008
  147. SYNTHROID [Concomitant]
     Active Substance: LEVOTHYROXINE SODIUM
     Route: 065
     Dates: start: 20130702
  148. LASIX [Concomitant]
     Active Substance: FUROSEMIDE
     Route: 065
     Dates: start: 20131125

REACTIONS (4)
  - Laryngeal oedema [Recovered/Resolved]
  - Flushing [Recovered/Resolved]
  - Laryngospasm [Recovered/Resolved]
  - Infusion related reaction [Recovered/Resolved]

NARRATIVE: CASE EVENT DATE: 20131106
